FAERS Safety Report 8801623 (Version 2)
Quarter: 2012Q4

REPORT INFORMATION
  Report Type: 
  Country: US (occurrence: US)
  Receive Date: 20120921
  Receipt Date: 20121119
  Transmission Date: 20130627
  Serious: Yes (Hospitalization)
  Sender: FDA-Public Use
  Company Number: US-BAYER-2012-098141

PATIENT
  Age: 24 Year
  Sex: Female

DRUGS (10)
  1. YASMIN [Suspect]
     Indication: CONTRACEPTION
     Dosage: UNK
     Dates: start: 200711, end: 201009
  2. OCELLA [Suspect]
     Dosage: UNK
     Dates: start: 200810
  3. DILAUDID [Concomitant]
  4. ZOFRAN [Concomitant]
  5. TORADOL [Concomitant]
  6. HYDROCODONE/ACETAMINOPHEN [Concomitant]
     Indication: PAIN
     Dosage: as needed
  7. SENNA [Concomitant]
     Dosage: 2 PILLS  nightly
  8. DOCUSATE [Concomitant]
     Dosage: BID
     Route: 048
  9. STOOL SOFTENER [Concomitant]
     Indication: CONSTIPATION
  10. LAXATIVES [Concomitant]
     Indication: CONSTIPATION

REACTIONS (9)
  - Pulmonary embolism [None]
  - Injury [None]
  - Emotional distress [None]
  - Depression [None]
  - Fear of death [None]
  - Nervousness [None]
  - Pulmonary embolism [None]
  - Pelvic venous thrombosis [None]
  - Vena cava thrombosis [None]
